FAERS Safety Report 6821445-6 (Version None)
Quarter: 2010Q3

REPORT INFORMATION
  Report Type: 
  Country: None (occurrence: None)
  Receive Date: 20100707
  Receipt Date: 20080815
  Transmission Date: 20110219
  Serious: No
  Sender: FDA-Public Use
  Company Number: US-PFIZER INC-2008057592

PATIENT
  Sex: Male
  Weight: 88.636 kg

DRUGS (6)
  1. ZOLOFT [Suspect]
     Indication: DEPRESSION
     Route: 048
     Dates: start: 20050801
  2. ANALGESICS [Suspect]
     Indication: PAIN
  3. METHADONE [Concomitant]
  4. CHROMAGEN [Concomitant]
     Indication: ANAEMIA
  5. DRUG, UNSPECIFIED [Concomitant]
  6. FISH OIL [Concomitant]

REACTIONS (1)
  - DRUG SCREEN FALSE POSITIVE [None]
